FAERS Safety Report 4733516-9 (Version None)
Quarter: 2005Q3

REPORT INFORMATION
  Report Type: 
  Country: None (occurrence: None)
  Receive Date: 20050803
  Receipt Date: 20050803
  Transmission Date: 20060218
  Serious: Yes (Other)
  Sender: FDA-Public Use
  Company Number: None

PATIENT
  Age: 71 Year
  Sex: Male
  Weight: 73.5 kg

DRUGS (12)
  1. ZETIA [Suspect]
  2. FLUVASTATIN 40MG CAP [Suspect]
  3. FELODIPINE [Concomitant]
  4. ALBUTEROL [Concomitant]
  5. ACETAMINOPHEN [Concomitant]
  6. ALBUTEROL [Concomitant]
  7. FOSINOPRIL SODIUM [Concomitant]
  8. FUROSEMIDE [Concomitant]
  9. EZETIMIBE [Concomitant]
  10. RISEDRONATE [Concomitant]
  11. FLUVASTATIN [Concomitant]
  12. CAPSAICIN [Concomitant]

REACTIONS (1)
  - MYALGIA [None]
